FAERS Safety Report 25248183 (Version 2)
Quarter: 2025Q3

REPORT INFORMATION
  Report Type: Spontaneous
  Country: BR (occurrence: BR)
  Receive Date: 20250429
  Receipt Date: 20250803
  Transmission Date: 20251021
  Serious: Yes (Death, Hospitalization, Other)
  Sender: ALEXION PHARMACEUTICALS
  Company Number: BR-AstraZeneca-CH-00855220A

PATIENT
  Age: 62 Year
  Sex: Male

DRUGS (9)
  1. DAPAGLIFLOZIN [Suspect]
     Active Substance: DAPAGLIFLOZIN
     Dosage: 10 MILLIGRAM, QD
     Route: 065
     Dates: start: 202403
  2. SEROQUEL [Suspect]
     Active Substance: QUETIAPINE FUMARATE
     Dosage: 25 MILLIGRAM, QD (AT NIGHT)
     Route: 065
     Dates: start: 20240412
  3. METOPROLOL SUCCINATE [Suspect]
     Active Substance: METOPROLOL SUCCINATE
     Dosage: 25 MILLIGRAM, QD (IN THE MORNING)
     Route: 065
     Dates: start: 202406
  4. CRESTOR [Suspect]
     Active Substance: ROSUVASTATIN CALCIUM
     Dosage: 40 MILLIGRAM, QD (AT NIGHT)
     Route: 065
  5. ASPIRIN [Concomitant]
     Active Substance: ASPIRIN
     Dosage: 1 DOSAGE FORM, QD (AFTER LUNCH)
     Route: 065
  6. VASTAREL [Concomitant]
     Active Substance: TRIMETAZIDINE DIHYDROCHLORIDE
     Dosage: 1 DOSAGE FORM, QD
     Route: 065
     Dates: start: 202408
  7. Acetyl [Concomitant]
     Dosage: 1 DOSAGE FORM, QD
     Route: 065
  8. DESVENLAFAXINE SUCCINATE [Concomitant]
     Active Substance: DESVENLAFAXINE SUCCINATE
     Dosage: 1 DOSAGE FORM, QD (IN THE MORNING)
     Route: 065
  9. FUROSEMIDE [Concomitant]
     Active Substance: FUROSEMIDE
     Dosage: 1 DOSAGE FORM, QD (IN THE MORNING)
     Route: 065

REACTIONS (5)
  - Death [Fatal]
  - Affective disorder [Unknown]
  - Cardiac amyloidosis [Unknown]
  - Plasma cell myeloma [Unknown]
  - Cerebrovascular accident [Unknown]

NARRATIVE: CASE EVENT DATE: 20240901
